FAERS Safety Report 25626527 (Version 1)
Quarter: 2025Q3

REPORT INFORMATION
  Report Type: Report from Study
  Country: TH (occurrence: TH)
  Receive Date: 20250731
  Receipt Date: 20250731
  Transmission Date: 20251020
  Serious: Yes (Other)
  Sender: ROCHE
  Company Number: TH-ROCHE-10000332028

PATIENT
  Age: 38 Year
  Sex: Female

DRUGS (1)
  1. KADCYLA [Suspect]
     Active Substance: ADO-TRASTUZUMAB EMTANSINE
     Indication: Breast cancer metastatic
     Route: 050

REACTIONS (4)
  - Weight decreased [Unknown]
  - Headache [Unknown]
  - Metastases to central nervous system [Unknown]
  - Weight increased [Unknown]
